FAERS Safety Report 12296758 (Version 1)
Quarter: 2016Q2

REPORT INFORMATION
  Report Type: Spontaneous
  Country: GB (occurrence: GB)
  Receive Date: 20160422
  Receipt Date: 20160422
  Transmission Date: 20160815
  Serious: Yes (Death, Other)
  Sender: FDA-Public Use
  Company Number: GB-BAUSCH-BL-2016-009421

PATIENT
  Age: 58 Year
  Sex: Female
  Weight: 73.5 kg

DRUGS (2)
  1. DASATINIB [Suspect]
     Active Substance: DASATINIB
     Indication: CHRONIC MYELOID LEUKAEMIA
     Dosage: TRIPLE INTRATHECAL THERAPY
     Route: 037
     Dates: end: 20110810
  2. DEXAMETHASONE. [Suspect]
     Active Substance: DEXAMETHASONE
     Indication: CHRONIC MYELOID LEUKAEMIA
     Dosage: TRIPLE INTRATHECAL THERAPY
     Route: 037

REACTIONS (1)
  - Malignant neoplasm progression [Fatal]

NARRATIVE: CASE EVENT DATE: 20110808
